FAERS Safety Report 6907133-6 (Version None)
Quarter: 2010Q3

REPORT INFORMATION
  Report Type: 
  Country: None (occurrence: None)
  Receive Date: 20100804
  Receipt Date: 20090410
  Transmission Date: 20110219
  Serious: No
  Sender: FDA-Public Use
  Company Number: US-PFIZER INC-2003011318

PATIENT
  Sex: Female
  Weight: 58.97 kg

DRUGS (3)
  1. NARDIL [Suspect]
     Indication: PANIC ATTACK
     Dosage: 15 MG/DAY
     Route: 048
  2. SINEQUAN [Suspect]
     Indication: PANIC ATTACK
     Dosage: 45 MG DAILY
     Route: 048
  3. CEFUROXIME [Suspect]
     Indication: SINUSITIS
     Route: 048
     Dates: start: 20030306, end: 20030310

REACTIONS (6)
  - DRY MOUTH [None]
  - HYPERTENSION [None]
  - MUSCULAR WEAKNESS [None]
  - PALPITATIONS [None]
  - SINUSITIS [None]
  - TREMOR [None]
